FAERS Safety Report 9540272 (Version 2)
Quarter: 2013Q4

REPORT INFORMATION
  Report Type: Spontaneous
  Country: JP (occurrence: None)
  Receive Date: 20130917
  Receipt Date: 20131211
  Transmission Date: 20140711
  Serious: Yes (Life-Threatening, Hospitalization, Disabling)
  Sender: FDA-Public Use
  Company Number: SYM-2013-10629

PATIENT
  Age: 59 Year
  Sex: Male
  Weight: 69 kg

DRUGS (19)
  1. FLUOROURACIL [Suspect]
     Indication: RECTAL CANCER
     Route: 040
     Dates: start: 20100628, end: 20100629
  2. FLUOROURACIL [Suspect]
     Route: 040
     Dates: start: 20100628, end: 20100629
  3. ELPLAT [Suspect]
     Indication: RECTAL CANCER
     Dates: start: 20100628, end: 20100628
  4. ELPLAT [Suspect]
     Dates: start: 20100628, end: 20100628
  5. CALCIUM LEVOFOLINATE [Suspect]
     Indication: RECTAL CANCER
     Dates: start: 20100628, end: 20100629
  6. CALCIUM LEVOFOLINATE [Suspect]
     Dates: start: 20100628, end: 20100629
  7. THYRADIN (THYROID) (THYROID) [Concomitant]
  8. MUCOSTA (REBAMIPIDE) (REBAMIPIDE) [Concomitant]
  9. LOXONIN (LOXOPROFEN SODIUM) (LOXOPROFEN SODIUM) [Concomitant]
  10. KYTRIL (GRANISETRON HYDROCHLORIDE)  (GRANISETRON HYDROCHLORIDE) [Concomitant]
  11. DECADRON (DEXAMETHASONE)  (DEXAMETHASONE) [Concomitant]
  12. ROPION (FLURBIPROFEN AXETIL)(FLURBIPROFEN AXETIL) [Concomitant]
  13. MODACIN (CEFTAZIDIME) (CEFTAZIDIME) [Concomitant]
  14. SOLUMEDROL (METHYLPREDNISOLONE SODIUM SUCCINATE)  (METHYLPREDNISOLONE SODIUM SUCCINATE) [Concomitant]
  15. FIRSTCIN (CEFOZOPRAN HYDROCHLORIDE) (CEFOZOPRAN HYDROCHLORIDE) [Concomitant]
  16. MINOPEN (MINOCYCLINE HYDROCHLORIDE) (MINOCYCLINE HYDROCHLORIDE) [Concomitant]
  17. PREDONINE (PREDNISOLONE)  (PREDNISOLONE) [Concomitant]
  18. PREDNISOLONE  (PREDNISOLONE)  (PREDNISOLONE) [Concomitant]
  19. VANCOMYCIN (VANCOMYCIN) (VANCOMYCIN) [Concomitant]

REACTIONS (3)
  - Pharyngeal abscess [None]
  - Quadriplegia [None]
  - Staphylococcus test positive [None]
